FAERS Safety Report 7769759-X (Version None)
Quarter: 2011Q3

REPORT INFORMATION
  Report Type: 
  Country: None (occurrence: None)
  Receive Date: 20110922
  Receipt Date: 20110125
  Transmission Date: 20111222
  Serious: No
  Sender: FDA-Public Use
  Company Number: US-ASTRAZENECA-2011SE04650

PATIENT
  Age: 52 Year
  Sex: Male
  Weight: 117 kg

DRUGS (10)
  1. PROTONICS [Concomitant]
  2. SEROQUEL XR [Suspect]
     Indication: NIGHTMARE
     Route: 048
     Dates: start: 20101224
  3. NOVALOG ON SLIDING SCALE [Concomitant]
  4. BENICAR [Concomitant]
  5. SEROQUEL XR [Suspect]
     Route: 048
  6. SEROQUEL XR [Suspect]
     Route: 048
  7. LANTUS [Concomitant]
  8. SEROQUEL XR [Suspect]
     Indication: DEPRESSION
     Route: 048
     Dates: start: 20101224
  9. TOPROL-XL [Concomitant]
  10. ASPIRIN [Concomitant]

REACTIONS (8)
  - THERAPEUTIC RESPONSE UNEXPECTED [None]
  - HYPERSOMNIA [None]
  - ARTHRALGIA [None]
  - WRONG TECHNIQUE IN DRUG USAGE PROCESS [None]
  - WEIGHT INCREASED [None]
  - NO ADVERSE EVENT [None]
  - NASAL CONGESTION [None]
  - INCORRECT DOSE ADMINISTERED [None]
